FAERS Safety Report 24702430 (Version 1)
Quarter: 2024Q4

REPORT INFORMATION
  Report Type: Spontaneous
  Country: US (occurrence: None)
  Receive Date: 20241205
  Receipt Date: 20241205
  Transmission Date: 20250115
  Serious: Yes (Life-Threatening)
  Sender: Public
  Company Number: None

PATIENT
  Age: 45 Year
  Sex: Male
  Weight: 106 kg

DRUGS (1)
  1. LUMASON [Suspect]
     Active Substance: SULFUR HEXAFLUORIDE
     Indication: Cardiac imaging procedure
     Dosage: OTHER FREQUENCY : ONCE;?
     Route: 040
     Dates: start: 20241204, end: 20241204

REACTIONS (3)
  - Cardio-respiratory arrest [None]
  - Anaphylactic reaction [None]
  - Non-obstructive cardiomyopathy [None]

NARRATIVE: CASE EVENT DATE: 20241204
